FAERS Safety Report 9849387 (Version 1)
Quarter: 2013Q4

REPORT INFORMATION
  Report Type: Spontaneous
  Country: US (occurrence: None)
  Receive Date: 20131226
  Receipt Date: 20131226
  Transmission Date: 20140711
  Serious: Yes (Hospitalization)
  Sender: FDA-Public Use
  Company Number: PHEH2012US017893

PATIENT
  Sex: Female

DRUGS (3)
  1. AFINITOR (RAD) UNKNOWN [Suspect]
     Indication: BREAST CANCER
     Dosage: 10 MG , DAILY, PO 28JUN2012 TO UNK THERAPY DATES
     Route: 048
     Dates: start: 20120628
  2. AFINITOR (RAD) UNKNOWN [Concomitant]
  3. EXEMESTANE (EXEMESTANE) [Concomitant]

REACTIONS (1)
  - Swollen tongue [None]
